FAERS Safety Report 9692923 (Version 1)
Quarter: 2013Q4

REPORT INFORMATION
  Report Type: Spontaneous
  Country: US (occurrence: None)
  Receive Date: 20131115
  Receipt Date: 20131115
  Transmission Date: 20140711
  Serious: Yes (Life-Threatening, Hospitalization, Disabling)
  Sender: FDA-Public Use
  Company Number: None

PATIENT
  Age: 80 None
  Sex: Male
  Weight: 68.04 kg

DRUGS (7)
  1. TARCEVA 150 MG GENENTECH [Suspect]
     Indication: LUNG NEOPLASM MALIGNANT
     Dosage: 1 TAB
     Route: 048
     Dates: start: 20130629, end: 20130708
  2. TAMSULOSIN [Concomitant]
  3. LASIX [Concomitant]
  4. PREDNISONE [Concomitant]
  5. FOLIC ACID [Concomitant]
  6. VIT A-Z [Concomitant]
  7. CITRACAL [Concomitant]

REACTIONS (7)
  - Pruritus [None]
  - Rash generalised [None]
  - Malaise [None]
  - Local swelling [None]
  - Abasia [None]
  - Headache [None]
  - Eye disorder [None]
